FAERS Safety Report 9479160 (Version 1)
Quarter: 2013Q3

REPORT INFORMATION
  Report Type: Spontaneous
  Country: US (occurrence: US)
  Receive Date: 20130827
  Receipt Date: 20130827
  Transmission Date: 20140515
  Serious: Yes (Other)
  Sender: FDA-Public Use
  Company Number: US-BAYER-2013-103151

PATIENT
  Sex: Female

DRUGS (1)
  1. ALKA-SELTZER PLUS DAY NON-DROWSY COLD AND FLU FORMULA [Suspect]
     Indication: NASOPHARYNGITIS

REACTIONS (2)
  - Choking [None]
  - Foreign body [None]
